FAERS Safety Report 5227058-4 (Version None)
Quarter: 2007Q1

REPORT INFORMATION
  Report Type: 
  Country: None (occurrence: None)
  Receive Date: 20070201
  Receipt Date: 20070201
  Transmission Date: 20070707
  Serious: No
  Sender: FDA-Public Use
  Company Number: None

PATIENT
  Age: 72 Year
  Sex: Female

DRUGS (2)
  1. SIMVASTATIN ANTILIPEMIC AGENTS [Suspect]
     Dosage: ORAL 20.0 MILLIGRAM
     Route: 048
     Dates: start: 20011001, end: 20061215
  2. LISINOPRIL [Concomitant]

REACTIONS (2)
  - BIOPSY LIVER ABNORMAL [None]
  - TRANSAMINASES INCREASED [None]
